FAERS Safety Report 17727092 (Version 2)
Quarter: 2020Q2

REPORT INFORMATION
  Report Type: Report from Study
  Country: EG (occurrence: EG)
  Receive Date: 20200430
  Receipt Date: 20200620
  Transmission Date: 20200714
  Serious: Yes (Death, Other)
  Sender: FDA-Public Use
  Company Number: EG-UNITED THERAPEUTICS-UNT-2020-006378

PATIENT
  Sex: Male
  Weight: 65 kg

DRUGS (1)
  1. TREPROSTINIL SODIUM (SQ) [Suspect]
     Active Substance: TREPROSTINIL SODIUM
     Indication: PULMONARY ARTERIAL HYPERTENSION
     Dosage: 0.0375 ?G/KG, CONTINUING
     Route: 058

REACTIONS (1)
  - Right ventricular failure [Fatal]
